FAERS Safety Report 23536100 (Version 2)
Quarter: 2024Q1

REPORT INFORMATION
  Report Type: Spontaneous
  Country: FR (occurrence: FR)
  Receive Date: 20240219
  Receipt Date: 20240306
  Transmission Date: 20240410
  Serious: Yes (Other)
  Sender: FDA-Public Use
  Company Number: FR-OPELLA-2024OHG004503

PATIENT
  Age: 57 Year
  Sex: Female

DRUGS (5)
  1. ALLEGRA ALLERGY [Suspect]
     Active Substance: FEXOFENADINE HYDROCHLORIDE
     Indication: Pruritus
     Route: 065
  2. XYZAL [Suspect]
     Active Substance: LEVOCETIRIZINE DIHYDROCHLORIDE
     Indication: Photosensitivity reaction
  3. DIAZEPAM [Suspect]
     Active Substance: DIAZEPAM
     Indication: Pruritus
     Dosage: 1 MILLIGRAM, 2X/DAY (BID)
  4. DIAZEPAM [Suspect]
     Active Substance: DIAZEPAM
     Indication: Insomnia
     Dosage: 1 MILLIGRAM, 2X/DAY (BID)
  5. PLAQUENIL [Suspect]
     Active Substance: HYDROXYCHLOROQUINE SULFATE
     Indication: Polymorphic light eruption
     Dosage: FILM-COATED TABLET, 200 MILLIGRAM
     Dates: end: 202312

REACTIONS (5)
  - Toxic skin eruption [Unknown]
  - Rash erythematous [Recovering/Resolving]
  - Insomnia [Recovering/Resolving]
  - Pruritus [Recovering/Resolving]
  - Drug ineffective [Unknown]

NARRATIVE: CASE EVENT DATE: 20231201
